FAERS Safety Report 9673499 (Version 1)
Quarter: 2013Q4

REPORT INFORMATION
  Report Type: Spontaneous
  Country: US (occurrence: US)
  Receive Date: 20131106
  Receipt Date: 20131106
  Transmission Date: 20140711
  Serious: No
  Sender: FDA-Public Use
  Company Number: US-AMGEN-USASP2013075134

PATIENT
  Age: 27 Year
  Sex: Female

DRUGS (1)
  1. ENBREL [Suspect]
     Indication: TUMOUR NECROSIS FACTOR RECEPTOR-ASSOCIATED PERIODIC SYNDROME
     Dosage: 25 MG, 2 TIMES/WK
     Route: 065
     Dates: start: 20130512

REACTIONS (4)
  - Hypothyroidism [Not Recovered/Not Resolved]
  - Migraine [Recovered/Resolved]
  - Alopecia [Not Recovered/Not Resolved]
  - Chest pain [Recovered/Resolved]
